FAERS Safety Report 8768091 (Version 1)
Quarter: 2012Q4

REPORT INFORMATION
  Report Type: 
  Country: US (occurrence: US)
  Receive Date: 20120905
  Receipt Date: 20120905
  Transmission Date: 20130627
  Serious: Yes (Hospitalization)
  Sender: FDA-Public Use
  Company Number: US-GLAXOSMITHKLINE-A0724621A

PATIENT
  Sex: Female
  Weight: 79.5 kg

DRUGS (8)
  1. AVANDIA [Suspect]
     Indication: TYPE 2 DIABETES MELLITUS
     Dosage: 8MG Per day
     Route: 048
     Dates: start: 2000, end: 2007
  2. AVANDAMET [Suspect]
     Indication: TYPE 2 DIABETES MELLITUS
     Route: 048
     Dates: start: 200510
  3. METFORMIN [Concomitant]
     Dates: start: 20040116
  4. DIABETA [Concomitant]
     Dates: start: 20040622, end: 2004
  5. METOPROLOL [Concomitant]
  6. VYTORIN [Concomitant]
  7. LEXAPRO [Concomitant]
  8. PREVACID [Concomitant]

REACTIONS (4)
  - Adverse event [Unknown]
  - Chest pain [Unknown]
  - Tachycardia [Unknown]
  - Myocardial infarction [Unknown]
